FAERS Safety Report 10337760 (Version 1)
Quarter: 2014Q3

REPORT INFORMATION
  Report Type: Spontaneous
  Country: US (occurrence: US)
  Receive Date: 20140724
  Receipt Date: 20140724
  Transmission Date: 20150326
  Serious: No
  Sender: FDA-Public Use
  Company Number: US-UNITED THERAPEUTICS-UTC-045566

PATIENT
  Age: 57 Year
  Sex: Male

DRUGS (9)
  1. ADCIRCA [Concomitant]
     Active Substance: TADALAFIL
  2. SENOKOT [Concomitant]
     Active Substance: SENNOSIDES
  3. ALBUTEROL SULFATE. [Concomitant]
     Active Substance: ALBUTEROL SULFATE
  4. LASIX [Concomitant]
     Active Substance: FUROSEMIDE
  5. CYCLOBENZAPRINE [Concomitant]
     Active Substance: CYCLOBENZAPRINE
  6. COUMADIN [Concomitant]
     Active Substance: WARFARIN SODIUM
  7. OXYCODONE [Concomitant]
     Active Substance: OXYCODONE
  8. LIPITOR [Concomitant]
     Active Substance: ATORVASTATIN CALCIUM
  9. TYVASO [Suspect]
     Active Substance: TREPROSTINIL
     Dates: start: 20130829

REACTIONS (3)
  - Treatment noncompliance [Recovered/Resolved]
  - Chills [Recovered/Resolved]
  - Malaise [Recovered/Resolved]

NARRATIVE: CASE EVENT DATE: 20140226
